FAERS Safety Report 5942491-0 (Version None)
Quarter: 2008Q4

REPORT INFORMATION
  Report Type: 
  Country: None (occurrence: None)
  Receive Date: 20081105
  Receipt Date: 20081027
  Transmission Date: 20090506
  Serious: Yes (Other)
  Sender: FDA-Public Use
  Company Number: AU-PFIZER INC-2008090672

PATIENT
  Sex: Female

DRUGS (1)
  1. CHAMPIX [Suspect]
     Route: 048

REACTIONS (5)
  - BIPOLAR DISORDER [None]
  - DEPRESSION [None]
  - DISSOCIATION [None]
  - MANIA [None]
  - NAUSEA [None]
